FAERS Safety Report 6928850-8 (Version None)
Quarter: 2010Q3

REPORT INFORMATION
  Report Type: 
  Country: None (occurrence: None)
  Receive Date: 20100817
  Receipt Date: 20100803
  Transmission Date: 20110219
  Serious: Yes (Hospitalization, Disabling)
  Sender: FDA-Public Use
  Company Number: PHHY2010US51060

PATIENT

DRUGS (1)
  1. LOTREL [Suspect]
     Dosage: 40 MG

REACTIONS (5)
  - HYPOTENSION [None]
  - NERVOUS SYSTEM DISORDER [None]
  - OVERDOSE [None]
  - RENAL DISORDER [None]
  - SPEECH DISORDER [None]
